FAERS Safety Report 9319002 (Version 3)
Quarter: 2013Q3

REPORT INFORMATION
  Report Type: Report from Study
  Country: US (occurrence: US)
  Receive Date: 20130530
  Receipt Date: 20130722
  Transmission Date: 20140515
  Serious: Yes (Hospitalization)
  Sender: FDA-Public Use
  Company Number: US-BRISTOL-MYERS SQUIBB COMPANY-17375817

PATIENT
  Age: 27 Year
  Sex: Female

DRUGS (5)
  1. ARIPIPRAZOLE [Suspect]
     Indication: BIPOLAR DISORDER
     Dosage: DOSE INCREASED :10 MG
     Route: 048
     Dates: start: 20130123
  2. ATIVAN [Concomitant]
     Dates: start: 20130130
  3. DEPAKOTE [Concomitant]
     Dates: start: 20130131
  4. RISPERDAL [Concomitant]
     Dates: start: 20130131
  5. XANAX [Concomitant]
     Dates: start: 20130131

REACTIONS (1)
  - Mania [Recovering/Resolving]
